FAERS Safety Report 11650889 (Version 3)
Quarter: 2016Q1

REPORT INFORMATION
  Report Type: Spontaneous
  Country: NO (occurrence: NO)
  Receive Date: 20151021
  Receipt Date: 20160209
  Transmission Date: 20160525
  Serious: Yes (Hospitalization, Other)
  Sender: FDA-Public Use
  Company Number: NO-ASTRAZENECA-2015SE99390

PATIENT
  Age: 289 Month
  Sex: Female

DRUGS (3)
  1. CIPRALEX [Suspect]
     Active Substance: ESCITALOPRAM OXALATE
     Indication: PRODUCT USED FOR UNKNOWN INDICATION
     Route: 065
     Dates: end: 20131110
  2. SEROQUEL [Suspect]
     Active Substance: QUETIAPINE FUMARATE
     Indication: PRODUCT USED FOR UNKNOWN INDICATION
     Route: 048
     Dates: end: 20131110
  3. LAMICTAL [Suspect]
     Active Substance: LAMOTRIGINE
     Indication: PRODUCT USED FOR UNKNOWN INDICATION
     Route: 065
     Dates: start: 20130830, end: 20131110

REACTIONS (10)
  - Stevens-Johnson syndrome [Recovered/Resolved]
  - Anxiety [Recovered/Resolved]
  - Acinetobacter bacteraemia [Recovered/Resolved]
  - Migraine [Recovered/Resolved]
  - Toxic epidermal necrolysis [Recovered/Resolved]
  - Obstructive airways disorder [Recovered/Resolved]
  - Sepsis [Recovering/Resolving]
  - Staphylococcal bacteraemia [Recovered/Resolved]
  - Wound infection staphylococcal [Recovered/Resolved]
  - Lens disorder [Unknown]

NARRATIVE: CASE EVENT DATE: 201311
